FAERS Safety Report 7334160-X (Version None)
Quarter: 2011Q1

REPORT INFORMATION
  Report Type: 
  Country: None (occurrence: None)
  Receive Date: 20110307
  Receipt Date: 20100105
  Transmission Date: 20110831
  Serious: No
  Sender: FDA-Public Use
  Company Number: US-BAYER-201010577NA

PATIENT
  Sex: Female
  Weight: 86.818 kg

DRUGS (2)
  1. MIRENA [Suspect]
     Dosage: 20 ?G/D, CONT
  2. ALBUTEROL [Concomitant]
     Indication: ASTHMA

REACTIONS (1)
  - DEVICE EXPULSION [None]
